FAERS Safety Report 25289222 (Version 1)
Quarter: 2025Q2

REPORT INFORMATION
  Report Type: Report from Study
  Country: US (occurrence: US)
  Receive Date: 20250509
  Receipt Date: 20250509
  Transmission Date: 20250716
  Serious: Yes (Death)
  Sender: ABBVIE
  Company Number: US-ABBVIE-6274637

PATIENT
  Age: 76 Year
  Sex: Male

DRUGS (3)
  1. VENCLEXTA [Suspect]
     Active Substance: VENETOCLAX
     Indication: Lymphocytic leukaemia
     Route: 048
  2. VENCLEXTA [Suspect]
     Active Substance: VENETOCLAX
     Indication: Lymphocytic leukaemia
     Route: 048
  3. VENCLEXTA [Suspect]
     Active Substance: VENETOCLAX
     Indication: Lymphocytic leukaemia
     Route: 048

REACTIONS (1)
  - Death [Fatal]

NARRATIVE: CASE EVENT DATE: 20221030
